FAERS Safety Report 9293287 (Version 2)
Quarter: 2013Q2

REPORT INFORMATION
  Report Type: Spontaneous
  Country: US (occurrence: US)
  Receive Date: 20130517
  Receipt Date: 20130523
  Transmission Date: 20140414
  Serious: Yes (Other)
  Sender: FDA-Public Use
  Company Number: US-AMGEN-USASP2013032743

PATIENT
  Age: 2 Year
  Sex: Female
  Weight: 14.3 kg

DRUGS (2)
  1. ENBREL [Suspect]
     Indication: JUVENILE IDIOPATHIC ARTHRITIS
     Dosage: 25 MG, QWK
     Route: 058
     Dates: start: 20120618
  2. OMEPRAZOLE [Concomitant]
     Indication: ABDOMINAL DISCOMFORT
     Dosage: 5 ML, QD
     Route: 048
     Dates: start: 20120618

REACTIONS (2)
  - Hepatic enzyme increased [Recovered/Resolved]
  - Juvenile idiopathic arthritis [Not Recovered/Not Resolved]
